FAERS Safety Report 10897573 (Version 1)
Quarter: 2015Q1

REPORT INFORMATION
  Report Type: Spontaneous
  Country: US (occurrence: None)
  Receive Date: 20150302
  Receipt Date: 20150302
  Transmission Date: 20150721
  Serious: No
  Sender: FDA-Public Use
  Company Number: None

PATIENT
  Age: 42 Year
  Sex: Female
  Weight: 78.02 kg

DRUGS (5)
  1. NORVASC [Concomitant]
     Active Substance: AMLODIPINE BESYLATE
  2. METPROLOL [Concomitant]
     Active Substance: METOPROLOL
  3. FLORNIEF [Concomitant]
  4. TRANSDERM SCOP [Suspect]
     Active Substance: SCOPOLAMINE
     Indication: HYPOTENSION
     Dosage: EVERY 3 DAYS
     Dates: start: 20150224, end: 20150226
  5. TRANSDERM SCOP [Suspect]
     Active Substance: SCOPOLAMINE
     Indication: DIZZINESS
     Dosage: EVERY 3 DAYS
     Dates: start: 20150224, end: 20150226

REACTIONS (6)
  - Heart rate decreased [None]
  - Blood pressure decreased [None]
  - Confusional state [None]
  - Dry mouth [None]
  - Dizziness [None]
  - Loss of consciousness [None]

NARRATIVE: CASE EVENT DATE: 20150225
